FAERS Safety Report 9454908 (Version 1)
Quarter: 2013Q3

REPORT INFORMATION
  Report Type: Spontaneous
  Country: US (occurrence: US)
  Receive Date: 20130813
  Receipt Date: 20130813
  Transmission Date: 20140515
  Serious: Yes (Other)
  Sender: FDA-Public Use
  Company Number: US-SUN PHARMACEUTICAL INDUSTRIES LTD-2013SUN03705

PATIENT
  Age: 59 Year
  Sex: Male

DRUGS (8)
  1. GEMFIBROZIL [Suspect]
     Indication: PRODUCT USED FOR UNKNOWN INDICATION
     Dosage: 600 MG, BID
     Route: 065
  2. ATORVASTATIN [Interacting]
     Indication: ACUTE MYOCARDIAL INFARCTION
     Dosage: 20 MG, QD
     Route: 065
  3. OMEPRAZOLE [Interacting]
     Indication: ACQUIRED OESOPHAGEAL WEB
     Dosage: 20 MG, UNK
     Route: 065
  4. OMEPRAZOLE [Interacting]
     Indication: OESOPHAGITIS
  5. AMLODIPINE [Concomitant]
  6. ASPIRIN [Concomitant]
  7. NITRATES NOS [Concomitant]
  8. METOPROLOL [Concomitant]

REACTIONS (2)
  - Polymyositis [Recovered/Resolved]
  - Drug interaction [None]
